FAERS Safety Report 21622417 (Version 1)
Quarter: 2022Q4

REPORT INFORMATION
  Report Type: Spontaneous
  Country: DE (occurrence: DE)
  Receive Date: 20221121
  Receipt Date: 20221121
  Transmission Date: 20230113
  Serious: Yes (Other)
  Sender: FDA-Public Use
  Company Number: None

PATIENT
  Age: 86 Year
  Sex: Male
  Weight: 70 kg

DRUGS (9)
  1. LAGEVRIO [Suspect]
     Active Substance: MOLNUPIRAVIR
     Indication: Coronavirus infection
     Dosage: 4-0-4
     Route: 048
     Dates: start: 20220928, end: 20220930
  2. METOPROLOL SUCCINATE [Concomitant]
     Active Substance: METOPROLOL SUCCINATE
     Dosage: UNK
     Route: 048
     Dates: start: 20200101, end: 20221014
  3. EDOXABAN TOSYLATE [Concomitant]
     Active Substance: EDOXABAN TOSYLATE
     Dosage: UNK
     Route: 048
     Dates: start: 20200101, end: 20221014
  4. ATORVASTATIN AXIROMED [Concomitant]
     Dosage: UNK
     Route: 048
     Dates: start: 20200101, end: 20221014
  5. EPLERENONE [Concomitant]
     Active Substance: EPLERENONE
     Dosage: UNK
     Route: 048
     Dates: start: 20200101, end: 20201014
  6. NALOXONE HYDROCHLORIDE\TILIDINE HYDROCHLORIDE [Concomitant]
     Active Substance: NALOXONE HYDROCHLORIDE\TILIDINE HYDROCHLORIDE
     Dosage: UNK
     Route: 048
     Dates: start: 20220101, end: 20221014
  7. TAMSULOSIN [Concomitant]
     Active Substance: TAMSULOSIN
     Dosage: UNK
     Route: 048
     Dates: start: 20200101, end: 20221014
  8. ALLOPURINOL INDOCO [Concomitant]
     Dosage: UNK
     Route: 048
     Dates: start: 20200101, end: 20221014
  9. ENTRESTO [Concomitant]
     Active Substance: SACUBITRIL\VALSARTAN
     Dosage: UNK
     Route: 048
     Dates: start: 20200101, end: 20221014

REACTIONS (8)
  - Cognitive disorder [Recovered/Resolved]
  - Aggression [Unknown]
  - Condition aggravated [Unknown]
  - Personality change [Unknown]
  - Mental impairment [Recovered/Resolved]
  - Hallucinations, mixed [Recovered/Resolved]
  - Red blood cell count decreased [Unknown]
  - Mental disorder [Recovered/Resolved]

NARRATIVE: CASE EVENT DATE: 20220929
